APPROVED DRUG PRODUCT: SODIUM OXYBATE
Active Ingredient: SODIUM OXYBATE
Strength: 0.5GM/ML
Dosage Form/Route: SOLUTION;ORAL
Application: A202090 | Product #001
Applicant: HIKMA PHARMACEUTICALS USA INC
Approved: Jan 17, 2017 | RLD: No | RS: No | Type: DISCN